FAERS Safety Report 7406801-X (Version None)
Quarter: 2011Q2

REPORT INFORMATION
  Report Type: 
  Country: None (occurrence: None)
  Receive Date: 20110411
  Receipt Date: 20110401
  Transmission Date: 20111010
  Serious: No
  Sender: FDA-Public Use
  Company Number: DE-ASTRAZENECA-2011SE19252

PATIENT
  Sex: Female

DRUGS (2)
  1. VALPROAT [Suspect]
     Indication: BIPOLAR DISORDER
  2. SEROQUEL [Suspect]
     Indication: BIPOLAR DISORDER
     Route: 048

REACTIONS (1)
  - PLATELET COUNT DECREASED [None]
